FAERS Safety Report 12806374 (Version 2)
Quarter: 2016Q4

REPORT INFORMATION
  Report Type: Spontaneous
  Country: US (occurrence: US)
  Receive Date: 20161004
  Receipt Date: 20161012
  Transmission Date: 20170207
  Serious: No
  Sender: FDA-Public Use
  Company Number: US-UNICHEM LABORATORIES LIMITED-UCM201509-000830

PATIENT
  Age: 79 Year
  Sex: Female

DRUGS (8)
  1. THYROXINE [Concomitant]
     Active Substance: LEVOTHYROXINE
     Indication: HYPOTHYROIDISM
  2. BUPROPION. [Concomitant]
     Active Substance: BUPROPION
  3. VITAMIN D [Concomitant]
     Active Substance: CHOLECALCIFEROL
  4. ATENOLOL. [Concomitant]
     Active Substance: ATENOLOL
  5. EXFORGE [Concomitant]
     Active Substance: AMLODIPINE BESYLATE\VALSARTAN
     Indication: BLOOD PRESSURE MEASUREMENT
  6. HYDROCHLOROTHIAZIDE. [Suspect]
     Active Substance: HYDROCHLOROTHIAZIDE
     Indication: HYPERTENSION
     Route: 048
  7. VITAMIN B12 [Concomitant]
     Active Substance: CYANOCOBALAMIN
  8. MAGNESIUM [Concomitant]
     Active Substance: MAGNESIUM

REACTIONS (4)
  - Pruritus [Recovered/Resolved]
  - Skin discolouration [Recovered/Resolved]
  - Contusion [Recovering/Resolving]
  - Rash [Recovering/Resolving]

NARRATIVE: CASE EVENT DATE: 201507
